FAERS Safety Report 24855953 (Version 1)
Quarter: 2025Q1

REPORT INFORMATION
  Report Type: Spontaneous
  Country: US (occurrence: None)
  Receive Date: 20250116
  Receipt Date: 20250116
  Transmission Date: 20250409
  Serious: No
  Sender: FDA-CTU
  Company Number: None

PATIENT
  Age: 72 Year
  Sex: Female
  Weight: 74.84 kg

DRUGS (6)
  1. MOUNJARO [Suspect]
     Active Substance: TIRZEPATIDE
     Indication: Diabetes mellitus
     Dosage: I INJECTION WEEKLY ?
     Dates: start: 20241005, end: 20241109
  2. MOUNJARO [Suspect]
     Active Substance: TIRZEPATIDE
     Indication: Weight control
  3. bcomplex [Concomitant]
  4. HERBALS\TURMERIC [Concomitant]
     Active Substance: HERBALS\TURMERIC
  5. vegan omega 3 [Concomitant]
  6. COLAGEN [Concomitant]

REACTIONS (12)
  - Nausea [None]
  - Constipation [None]
  - Dry mouth [None]
  - Stomatitis [None]
  - Poor quality sleep [None]
  - Disturbance in attention [None]
  - Fatigue [None]
  - Abdominal pain upper [None]
  - Decreased appetite [None]
  - Abdominal discomfort [None]
  - Post procedural complication [None]
  - Brain fog [None]

NARRATIVE: CASE EVENT DATE: 20241008
